FAERS Safety Report 22307483 (Version 1)
Quarter: 2023Q2

REPORT INFORMATION
  Report Type: Spontaneous
  Country: CH (occurrence: CH)
  Receive Date: 20230511
  Receipt Date: 20230511
  Transmission Date: 20230721
  Serious: Yes (Death)
  Sender: FDA-Public Use
  Company Number: CH-SUN PHARMACEUTICAL INDUSTRIES LTD-2023R1-382241

PATIENT
  Age: 67 Year
  Sex: Female

DRUGS (2)
  1. DOXORUBICIN [Suspect]
     Active Substance: DOXORUBICIN
     Indication: Leiomyosarcoma
     Dosage: 60 MILLIGRAM/SQ. METER/EVERY 3 WEEKS
     Route: 042
  2. DACARBAZINE [Suspect]
     Active Substance: DACARBAZINE
     Indication: Leiomyosarcoma
     Dosage: 800 MILLIGRAM/SQ. METER/EVERY 3 WEEKS
     Route: 065

REACTIONS (1)
  - Drug ineffective [Fatal]
